FAERS Safety Report 7384776-X (Version None)
Quarter: 2011Q1

REPORT INFORMATION
  Report Type: 
  Country: None (occurrence: None)
  Receive Date: 20110330
  Receipt Date: 20110321
  Transmission Date: 20110831
  Serious: Yes (Hospitalization)
  Sender: FDA-Public Use
  Company Number: US-ASTRAZENECA-2011SE11145

PATIENT
  Age: 59 Year
  Sex: Female

DRUGS (7)
  1. NEXIUM [Suspect]
     Route: 048
  2. CRESTOR [Suspect]
     Route: 048
  3. SYMBICORT [Suspect]
     Dosage: UNKNOWN
     Route: 055
  4. PRISTIQ [Concomitant]
  5. OSTEOFORTE [Concomitant]
  6. LEXAPRO [Concomitant]
  7. ACTINEL [Concomitant]

REACTIONS (10)
  - MUSCLE SPASMS [None]
  - VOMITING [None]
  - MALAISE [None]
  - GASTROOESOPHAGEAL REFLUX DISEASE [None]
  - INCONTINENCE [None]
  - GAIT DISTURBANCE [None]
  - DRUG DOSE OMISSION [None]
  - BACK DISORDER [None]
  - SENSATION OF FOREIGN BODY [None]
  - HYPOAESTHESIA [None]
